FAERS Safety Report 7073261-0 (Version None)
Quarter: 2010Q4

REPORT INFORMATION
  Report Type: 
  Country: None (occurrence: None)
  Receive Date: 20101029
  Receipt Date: 20100518
  Transmission Date: 20110411
  Serious: No
  Sender: FDA-Public Use
  Company Number: A0860227A

PATIENT
  Age: 63 Year
  Sex: Female

DRUGS (9)
  1. ADVAIR DISKUS 100/50 [Suspect]
     Indication: ASTHMA
     Dosage: 1PUFF TWICE PER DAY
     Route: 055
     Dates: start: 20100413
  2. VENTOLIN [Suspect]
     Indication: ASTHMA
     Dosage: 90MCG UNKNOWN
     Route: 055
     Dates: start: 20100413
  3. SPIRIVA [Suspect]
     Route: 065
  4. TRAZODONE [Concomitant]
  5. KLOR-CON M [Concomitant]
  6. PAROXETINE HCL [Concomitant]
  7. LEVOTHYROXINE [Concomitant]
  8. PROTONIX [Concomitant]
  9. XANAX [Concomitant]

REACTIONS (2)
  - DRUG INTERACTION [None]
  - TREMOR [None]
